FAERS Safety Report 17134335 (Version 1)
Quarter: 2019Q4

REPORT INFORMATION
  Report Type: Report from Study
  Country: None (occurrence: US)
  Receive Date: 20191210
  Receipt Date: 20191210
  Transmission Date: 20200122
  Serious: Yes (Other)
  Sender: FDA-Public Use
  Company Number: US-ABBVIE-19K-163-2624732-00

PATIENT
  Age: 52 Year
  Sex: Male

DRUGS (4)
  1. HUMIRA [Suspect]
     Active Substance: ADALIMUMAB
     Route: 058
     Dates: start: 2019
  2. HUMIRA [Suspect]
     Active Substance: ADALIMUMAB
     Indication: CROHN^S DISEASE
     Dosage: DAY 1
     Route: 058
     Dates: start: 20181129, end: 20181129
  3. HUMIRA [Suspect]
     Active Substance: ADALIMUMAB
     Dosage: DAY 29 AND ONWARDS
     Route: 058
     Dates: start: 20181227, end: 2019
  4. HUMIRA [Suspect]
     Active Substance: ADALIMUMAB
     Dosage: DAY 15
     Route: 058
     Dates: start: 20181213, end: 20181213

REACTIONS (14)
  - Intestinal mass [Recovering/Resolving]
  - Back pain [Unknown]
  - Blood test abnormal [Unknown]
  - Diarrhoea [Recovering/Resolving]
  - Tenderness [Unknown]
  - Oral herpes [Unknown]
  - Abdominal pain upper [Unknown]
  - Shock [Unknown]
  - Constipation [Recovering/Resolving]
  - Diarrhoea [Unknown]
  - Rectal haemorrhage [Recovering/Resolving]
  - Headache [Unknown]
  - Injection site bruising [Recovered/Resolved]
  - Injection site bruising [Recovered/Resolved]

NARRATIVE: CASE EVENT DATE: 201811
